FAERS Safety Report 4795815-4 (Version None)
Quarter: 2005Q3

REPORT INFORMATION
  Report Type: 
  Country: None (occurrence: None)
  Receive Date: 20050916
  Receipt Date: 20040825
  Transmission Date: 20060218
  Serious: Yes (Hospitalization, Other)
  Sender: FDA-Public Use
  Company Number: US-JNJFOC-20040102135

PATIENT
  Age: 29 Year
  Sex: Female
  Weight: 100.2449 kg

DRUGS (13)
  1. TOPAMAX [Suspect]
     Indication: ANXIETY
     Dosage: 25 MG, 2 IN 1 DAY, ORAL
     Route: 048
  2. TOPAMAX [Suspect]
     Indication: DEPRESSION
     Dosage: 25 MG, 2 IN 1 DAY, ORAL
     Route: 048
  3. TOPAMAX [Suspect]
     Indication: MOOD SWINGS
     Dosage: 25 MG, 2 IN 1 DAY, ORAL
     Route: 048
  4. PAXIL CR [Suspect]
     Indication: AFFECTIVE DISORDER
     Dosage: 37.5 MG, 1 IN 1 DAY
     Dates: start: 20040201, end: 20040501
  5. PAXIL CR [Suspect]
     Indication: GENERALISED ANXIETY DISORDER
     Dosage: 37.5 MG, 1 IN 1 DAY
     Dates: start: 20040201, end: 20040501
  6. BUTALBITAL/APAP (BUTALBITAL) [Concomitant]
  7. PROMETHAZINE [Concomitant]
  8. TRAZODONE HCL [Concomitant]
  9. HYDROCODONE/APAP (VICODIN) [Concomitant]
  10. PROTONIX [Concomitant]
  11. NEURONTIN [Concomitant]
  12. SOMA [Concomitant]
  13. PREVACID [Concomitant]

REACTIONS (17)
  - AGGRESSION [None]
  - BACK PAIN [None]
  - CONTUSION [None]
  - CONVULSION [None]
  - DEPRESSED LEVEL OF CONSCIOUSNESS [None]
  - DRUG ABUSER [None]
  - FACE INJURY [None]
  - FALL [None]
  - HOMICIDAL IDEATION [None]
  - MEMORY IMPAIRMENT [None]
  - MENTAL DISORDER [None]
  - MUSCLE STRAIN [None]
  - OVERDOSE [None]
  - SUICIDAL IDEATION [None]
  - SUICIDE ATTEMPT [None]
  - TOOTHACHE [None]
  - WEIGHT INCREASED [None]
